FAERS Safety Report 5162046-8 (Version None)
Quarter: 2006Q4

REPORT INFORMATION
  Report Type: 
  Country: None (occurrence: None)
  Receive Date: 20061121
  Receipt Date: 20061106
  Transmission Date: 20070319
  Serious: Yes (Hospitalization)
  Sender: FDA-Public Use
  Company Number: ALA_0014_2006

PATIENT
  Age: 43 Year
  Sex: Female

DRUGS (4)
  1. ROWASA [Suspect]
     Indication: ENTEROCOLITIS HAEMORRHAGIC
     Dosage: 500 MG QDAY RC
     Route: 054
  2. ROWASA [Suspect]
     Indication: ENTEROCOLITIS HAEMORRHAGIC
     Dosage: 2000 MG QDAY PO
     Route: 048
  3. XELODA [Suspect]
     Indication: RECTAL CANCER
     Dosage: 2900 MG
  4. RADIOTHERAPY [Suspect]
     Indication: RECTAL CANCER
     Dosage: DF
     Dates: start: 20060727, end: 20060901

REACTIONS (12)
  - ANAL FISTULA [None]
  - ANORECTAL DISORDER [None]
  - CANDIDIASIS [None]
  - DIARRHOEA [None]
  - INTESTINAL PERFORATION [None]
  - PROCTALGIA [None]
  - RECTAL CANCER [None]
  - SEPSIS [None]
  - VAGINAL DISORDER [None]
  - VAGINAL FISTULA [None]
  - VOMITING [None]
  - WEIGHT DECREASED [None]
